FAERS Safety Report 7581224-1 (Version None)
Quarter: 2011Q2

REPORT INFORMATION
  Report Type: 
  Country: None (occurrence: None)
  Receive Date: 20110629
  Receipt Date: 20110629
  Transmission Date: 20111010
  Serious: Yes (Death)
  Sender: FDA-Public Use
  Company Number: US-UCBSA-035833

PATIENT
  Sex: Female

DRUGS (6)
  1. METHOTREXATE [Concomitant]
     Dosage: 7.5MG EVERY WEEK
  2. NAPROXEN (ALEVE) [Concomitant]
  3. CIMZIA [Suspect]
     Indication: RHEUMATOID ARTHRITIS
     Route: 058
     Dates: start: 20110209
  4. LORTAB [Concomitant]
     Dosage: 7.5/500 ELIXIR
  5. LUMIGAN [Concomitant]
  6. METFORMIN HCL [Concomitant]

REACTIONS (1)
  - NASOPHARYNGITIS [None]
